FAERS Safety Report 8215053-2 (Version None)
Quarter: 2012Q1

REPORT INFORMATION
  Report Type: 
  Country: None (occurrence: None)
  Receive Date: 20120316
  Receipt Date: 20120302
  Transmission Date: 20120608
  Serious: Yes (Other)
  Sender: FDA-Public Use
  Company Number: AU-MYLANLABS-2012S1005014

PATIENT
  Age: 50 Year
  Sex: Male

DRUGS (10)
  1. FLUOXETINE [Suspect]
     Indication: MENTAL DISORDER
     Route: 065
  2. METOCLOPRAMIDE [Concomitant]
     Indication: MENTAL DISORDER
     Dosage: OCCASIONAL
     Route: 065
  3. DIAZEPAM [Concomitant]
     Indication: MENTAL DISORDER
     Route: 065
  4. VALPROATE SODIUM [Interacting]
     Indication: MENTAL DISORDER
     Dosage: DISCREPANCY IN DOSAGE (1000 OR 800 MG/DAY)
     Route: 065
  5. VENLAFAXINE [Interacting]
     Indication: MENTAL DISORDER
     Dosage: 300 MG/DAY
     Route: 065
  6. ZOPICLONE [Concomitant]
     Indication: MENTAL DISORDER
     Route: 065
  7. AMITRIPTYLINE HCL [Suspect]
     Indication: MENTAL DISORDER
     Route: 065
  8. ZOLPIDEM [Interacting]
     Indication: MENTAL DISORDER
     Route: 065
  9. ZOLPIDEM [Interacting]
     Dosage: 10MG
     Route: 065
  10. CIPROFLOXACIN [Interacting]
     Route: 065

REACTIONS (5)
  - SOMNAMBULISM [None]
  - HOMICIDE [None]
  - DRUG WITHDRAWAL SYNDROME [None]
  - AKATHISIA [None]
  - DRUG INTERACTION [None]
